FAERS Safety Report 12726592 (Version 3)
Quarter: 2016Q3

REPORT INFORMATION
  Report Type: Spontaneous
  Country: US (occurrence: US)
  Receive Date: 20160908
  Receipt Date: 20160926
  Transmission Date: 20161109
  Serious: Yes (Other)
  Sender: FDA-Public Use
  Company Number: US-GLAXOSMITHKLINE-US2016GSK130601

PATIENT
  Age: 35 Year
  Sex: Female

DRUGS (1)
  1. NUCALA [Suspect]
     Active Substance: MEPOLIZUMAB
     Indication: ASTHMA
     Dosage: UNK UNK, CYC
     Dates: start: 201601, end: 201603

REACTIONS (3)
  - Asthma [Recovering/Resolving]
  - Forced expiratory volume decreased [Recovering/Resolving]
  - Apparent death [Recovering/Resolving]

NARRATIVE: CASE EVENT DATE: 2016
